FAERS Safety Report 7361311-3 (Version None)
Quarter: 2011Q1

REPORT INFORMATION
  Report Type: 
  Country: None (occurrence: None)
  Receive Date: 20110318
  Receipt Date: 20110311
  Transmission Date: 20110831
  Serious: Yes (Other)
  Sender: FDA-Public Use
  Company Number: A0918596A

PATIENT
  Sex: Male
  Weight: 84 kg

DRUGS (3)
  1. VOTRIENT [Suspect]
     Indication: RENAL CANCER
     Dosage: 800MGD PER DAY
     Route: 048
     Dates: start: 20110223
  2. METFORMIN HCL [Concomitant]
  3. VILDAGLIPTIN [Concomitant]

REACTIONS (3)
  - HYPOGLYCAEMIA [None]
  - MUSCULAR WEAKNESS [None]
  - HYPERHIDROSIS [None]
